FAERS Safety Report 5023690-1 (Version None)
Quarter: 2006Q2

REPORT INFORMATION
  Report Type: 
  Country: None (occurrence: None)
  Receive Date: 20060606
  Receipt Date: 20060525
  Transmission Date: 20061013
  Serious: Yes (Hospitalization)
  Sender: FDA-Public Use
  Company Number: 0600809US

PATIENT
  Age: 81 Year
  Sex: Female

DRUGS (2)
  1. ALESION   (EPINASTINE HYDROCHLORIDE) [Suspect]
     Indication: PSORIASIS
     Dosage: 20 MG, ORAL
     Route: 048
     Dates: start: 20051122
  2. NEORAL [Suspect]
     Indication: PSORIASIS
     Dosage: 75 MG, ORAL
     Route: 048
     Dates: start: 20010323

REACTIONS (1)
  - HAEMATEMESIS [None]
